FAERS Safety Report 18994033 (Version 1)
Quarter: 2021Q1

REPORT INFORMATION
  Report Type: Spontaneous
  Country: ES (occurrence: ES)
  Receive Date: 20210311
  Receipt Date: 20210311
  Transmission Date: 20210420
  Serious: Yes (Other)
  Sender: FDA-Public Use
  Company Number: ES-SUN PHARMACEUTICAL INDUSTRIES LTD-2021RR-285053

PATIENT
  Age: 17 Year
  Sex: Male

DRUGS (4)
  1. TEMOZOLOMIDE. [Suspect]
     Active Substance: TEMOZOLOMIDE
     Indication: MEDULLOBLASTOMA
     Dosage: UNK
     Route: 065
  2. GEMCITABINE. [Suspect]
     Active Substance: GEMCITABINE
     Indication: MEDULLOBLASTOMA
     Dosage: UNK
     Route: 065
  3. IRINOTECAN [Suspect]
     Active Substance: IRINOTECAN
     Indication: MEDULLOBLASTOMA
     Dosage: UNK
     Route: 065
  4. OXALIPLATIN. [Suspect]
     Active Substance: OXALIPLATIN
     Indication: MEDULLOBLASTOMA
     Dosage: UNK
     Route: 065

REACTIONS (1)
  - Disease progression [Unknown]
